FAERS Safety Report 7553356-5 (Version None)
Quarter: 2011Q2

REPORT INFORMATION
  Report Type: 
  Country: None (occurrence: None)
  Receive Date: 20110617
  Receipt Date: 20110405
  Transmission Date: 20111010
  Serious: No
  Sender: FDA-Public Use
  Company Number: A0859777A

PATIENT
  Age: 77 Year
  Sex: Female

DRUGS (11)
  1. OMEPRAZOLE [Concomitant]
  2. LISINOPRIL [Concomitant]
  3. PREDNISONE [Concomitant]
  4. HYDROXYZINE HYDROCHLORIDE [Concomitant]
  5. TYLENOL-500 [Concomitant]
  6. DIGOXIN [Concomitant]
  7. ATENOLOL [Concomitant]
  8. PROMACTA [Suspect]
     Indication: IDIOPATHIC THROMBOCYTOPENIC PURPURA
     Dosage: 75MG PER DAY
     Route: 048
     Dates: start: 20100204, end: 20110105
  9. FUROSEMIDE [Concomitant]
  10. UNKNOWN MEDICATION [Concomitant]
  11. POTASSIUM CHLORIDE [Concomitant]

REACTIONS (2)
  - DRUG INEFFECTIVE [None]
  - EYE DISORDER [None]
